FAERS Safety Report 5739494-8 (Version None)
Quarter: 2008Q2

REPORT INFORMATION
  Report Type: 
  Country: None (occurrence: None)
  Receive Date: 20080515
  Receipt Date: 20080507
  Transmission Date: 20081010
  Serious: Yes (Other)
  Sender: FDA-Public Use
  Company Number: PHHY2008AU07278

PATIENT
  Age: 37 Year
  Sex: Female
  Weight: 63 kg

DRUGS (2)
  1. PANADEINE [Concomitant]
     Dosage: 2 DOSES/DAY
     Dates: start: 20070314
  2. FAMVIR [Suspect]
     Indication: HERPES ZOSTER
     Dosage: 750 MG/DAY
     Route: 048
     Dates: start: 20070314, end: 20070317

REACTIONS (6)
  - ABDOMINAL PAIN [None]
  - ANXIETY [None]
  - DIZZINESS [None]
  - HALLUCINATION [None]
  - INSOMNIA [None]
  - NAUSEA [None]
